FAERS Safety Report 20691640 (Version 3)
Quarter: 2023Q2

REPORT INFORMATION
  Report Type: Spontaneous
  Country: US (occurrence: US)
  Receive Date: 20220408
  Receipt Date: 20230502
  Transmission Date: 20230721
  Serious: No
  Sender: FDA-Public Use
  Company Number: US-INCYTE CORPORATION-2022IN003216

PATIENT

DRUGS (5)
  1. JAKAFI [Suspect]
     Active Substance: RUXOLITINIB
     Indication: Polycythaemia vera
     Dosage: 5 MILLIGRAM, BID
     Route: 048
     Dates: start: 20220127
  2. JAKAFI [Suspect]
     Active Substance: RUXOLITINIB
     Dosage: 5 MILLIGRAM, BID
     Route: 048
     Dates: start: 202203
  3. JAKAFI [Suspect]
     Active Substance: RUXOLITINIB
     Dosage: UNK, 5MG IN THE MORNING AND 5MG IN THE EVENING EVERY OTHER DAY
     Route: 048
  4. JAKAFI [Suspect]
     Active Substance: RUXOLITINIB
     Dosage: UNK, 5MG IN THE MORNING AND 2.5MG IN THE EVENING EVERY OTHER DAY
     Route: 048
  5. JAKAFI [Suspect]
     Active Substance: RUXOLITINIB
     Dosage: 5 MILLIGRAM, BID
     Route: 048
     Dates: start: 202203

REACTIONS (8)
  - Abdominal pain upper [Unknown]
  - Platelet count increased [Unknown]
  - Haematocrit increased [Unknown]
  - Red blood cell count increased [Unknown]
  - Full blood count decreased [Unknown]
  - Wrong technique in product usage process [Unknown]
  - Platelet count decreased [Unknown]
  - Haematocrit decreased [Unknown]
